FAERS Safety Report 14629113 (Version 2)
Quarter: 2018Q1

REPORT INFORMATION
  Report Type: Spontaneous
  Country: US (occurrence: US)
  Receive Date: 20180313
  Receipt Date: 20180330
  Transmission Date: 20180509
  Serious: Yes (Other)
  Sender: FDA-Public Use
  Company Number: US-ASTRAZENECA-2018SE19727

PATIENT
  Age: 28326 Day
  Sex: Female
  Weight: 109.3 kg

DRUGS (3)
  1. LANTUS [Concomitant]
     Active Substance: INSULIN GLARGINE
     Dosage: 50 UNITS TWICE A DAY
  2. LANTUS [Concomitant]
     Active Substance: INSULIN GLARGINE
     Dosage: 50 UNITS TWICE A DAY
  3. BYDUREON [Suspect]
     Active Substance: EXENATIDE
     Indication: TYPE 2 DIABETES MELLITUS
     Dosage: 2.0MG UNKNOWN
     Route: 058
     Dates: start: 20180205

REACTIONS (7)
  - Eye disorder [Not Recovered/Not Resolved]
  - Drug dose omission [Unknown]
  - Drug ineffective [Unknown]
  - Wrong technique in product usage process [Unknown]
  - Blood glucose increased [Unknown]
  - Limb discomfort [Unknown]
  - Product preparation error [Unknown]

NARRATIVE: CASE EVENT DATE: 20180205
